FAERS Safety Report 18491178 (Version 1)
Quarter: 2020Q4

REPORT INFORMATION
  Report Type: Spontaneous
  Country: US (occurrence: US)
  Receive Date: 20201111
  Receipt Date: 20201111
  Transmission Date: 20210114
  Serious: Yes (Other)
  Sender: FDA-Public Use
  Company Number: US-SUNOVION-2020SUN003298

PATIENT
  Age: 48 Year
  Sex: Female

DRUGS (2)
  1. LATUDA [Suspect]
     Active Substance: LURASIDONE HYDROCHLORIDE
     Dosage: 80 MG
     Route: 048
  2. LATUDA [Suspect]
     Active Substance: LURASIDONE HYDROCHLORIDE
     Dosage: 40 MG, QD (1/2 OF 80 MG TABLET FOR 7 DAYS)
     Route: 048

REACTIONS (7)
  - Hallucination [Unknown]
  - Therapy interrupted [Unknown]
  - Paranoia [Unknown]
  - Treatment failure [Unknown]
  - Fear [Unknown]
  - Off label use [Unknown]
  - Delusion [Unknown]
